FAERS Safety Report 13415877 (Version 3)
Quarter: 2017Q2

REPORT INFORMATION
  Report Type: Spontaneous
  Country: HU (occurrence: HU)
  Receive Date: 20170406
  Receipt Date: 20170516
  Transmission Date: 20170830
  Serious: Yes (Other)
  Sender: FDA-Public Use
  Company Number: HU-009507513-1703HUN014660

PATIENT
  Age: 49 Year
  Sex: Male

DRUGS (1)
  1. DIPROPHOS [Suspect]
     Active Substance: BETAMETHASONE DIPROPIONATE\BETAMETHASONE SODIUM PHOSPHATE
     Indication: EPICONDYLITIS
     Dosage: 1DF=EQUIVALENT TO 7MG BETAMETHASONE
     Dates: start: 20170309, end: 20170309

REACTIONS (4)
  - C-reactive protein increased [Recovering/Resolving]
  - Purulent discharge [Recovering/Resolving]
  - Injection site inflammation [Recovering/Resolving]
  - Product contamination [Unknown]

NARRATIVE: CASE EVENT DATE: 20170311
